FAERS Safety Report 23195958 (Version 1)
Quarter: 2023Q4

REPORT INFORMATION
  Report Type: Spontaneous
  Country: US (occurrence: None)
  Receive Date: 20231116
  Receipt Date: 20231116
  Transmission Date: 20240110
  Serious: Yes (Other)
  Sender: FDA-Public Use
  Company Number: None

PATIENT
  Age: 45 Year
  Sex: Male
  Weight: 99 kg

DRUGS (2)
  1. ENTYVIO [Suspect]
     Active Substance: VEDOLIZUMAB
     Indication: Crohn^s disease
     Dosage: OTHER FREQUENCY : AS DIRECTED;?
     Route: 041
     Dates: start: 20230919, end: 20231017
  2. RENFLEXIS [Suspect]
     Active Substance: INFLIXIMAB-ABDA
     Indication: Crohn^s disease
     Dosage: OTHER FREQUENCY : AS DIRECTED;?
     Route: 041
     Dates: start: 20230718, end: 20230912

REACTIONS (4)
  - Skin exfoliation [None]
  - Rash erythematous [None]
  - Psoriasis [None]
  - Cytokine abnormal [None]

NARRATIVE: CASE EVENT DATE: 20231017
